FAERS Safety Report 7810460-1 (Version None)
Quarter: 2011Q4

REPORT INFORMATION
  Report Type: 
  Country: None (occurrence: None)
  Receive Date: 20111012
  Receipt Date: 20110922
  Transmission Date: 20120403
  Serious: Yes (Other)
  Sender: FDA-Public Use
  Company Number: DE-GILEAD-2011-0043776

PATIENT

DRUGS (5)
  1. LAMIVUDIN [Concomitant]
  2. VIREAD [Suspect]
     Indication: HEPATITIS B
     Dosage: 245 MG, QD
     Route: 048
     Dates: start: 20100302, end: 20110909
  3. LISINOPRIL [Concomitant]
     Dosage: 1X1
     Route: 048
     Dates: start: 20101125
  4. INTERFERON [Concomitant]
  5. HEPSERA [Suspect]

REACTIONS (4)
  - AGITATED DEPRESSION [None]
  - DRUG INTOLERANCE [None]
  - DELUSION [None]
  - DEPRESSED MOOD [None]
